FAERS Safety Report 24943928 (Version 1)
Quarter: 2025Q1

REPORT INFORMATION
  Report Type: Spontaneous
  Country: US (occurrence: US)
  Receive Date: 20250207
  Receipt Date: 20250207
  Transmission Date: 20250408
  Serious: No
  Sender: PFIZER
  Company Number: US-PFIZER INC-PV202500014143

PATIENT
  Age: 65 Year
  Sex: Female

DRUGS (2)
  1. TUKYSA [Interacting]
     Active Substance: TUCATINIB
     Dosage: 2 TABLETS TWICE DAILY
  2. ATORVASTATIN [Interacting]
     Active Substance: ATORVASTATIN

REACTIONS (1)
  - Drug interaction [Unknown]
